FAERS Safety Report 25646135 (Version 1)
Quarter: 2025Q3

REPORT INFORMATION
  Report Type: Report from Study
  Country: US (occurrence: US)
  Receive Date: 20250805
  Receipt Date: 20250805
  Transmission Date: 20251021
  Serious: Yes (Other)
  Sender: ABBVIE
  Company Number: US-ABBVIE-6397319

PATIENT
  Sex: Female

DRUGS (1)
  1. QULIPTA [Suspect]
     Active Substance: ATOGEPANT
     Indication: Migraine
     Route: 048
     Dates: start: 20250720

REACTIONS (8)
  - Shoulder arthroplasty [Unknown]
  - Fall [Not Recovered/Not Resolved]
  - Balance disorder [Not Recovered/Not Resolved]
  - Hypoacusis [Unknown]
  - Cerebral disorder [Unknown]
  - Limb operation [Unknown]
  - Knee arthroplasty [Unknown]
  - Intervertebral disc operation [Unknown]
